FAERS Safety Report 4905378-8 (Version None)
Quarter: 2006Q1

REPORT INFORMATION
  Report Type: 
  Country: None (occurrence: None)
  Receive Date: 20060207
  Receipt Date: 20060207
  Transmission Date: 20060701
  Serious: Yes (Hospitalization)
  Sender: FDA-Public Use
  Company Number: None

PATIENT
  Sex: Male
  Weight: 77.1 kg

DRUGS (1)
  1. PEMETREXED    500MG/M2   500ML/M2    LILLY [Suspect]
     Indication: NEUROENDOCRINE CARCINOMA
     Dosage: 500ML/M2  DAY 1 OF 21 DAY CY   IV
     Route: 042
     Dates: start: 20051223, end: 20060113

REACTIONS (10)
  - HYDRONEPHROSIS [None]
  - HYPERCHOLESTEROLAEMIA [None]
  - HYPERTRIGLYCERIDAEMIA [None]
  - HYPOALBUMINAEMIA [None]
  - HYPONATRAEMIA [None]
  - NEPHROTIC SYNDROME [None]
  - OEDEMA [None]
  - OEDEMA PERIPHERAL [None]
  - PAIN [None]
  - PROTEIN URINE PRESENT [None]
